FAERS Safety Report 6037042-9 (Version None)
Quarter: 2009Q1

REPORT INFORMATION
  Report Type: 
  Country: None (occurrence: None)
  Receive Date: 20090114
  Receipt Date: 20090107
  Transmission Date: 20090719
  Serious: Yes (Other)
  Sender: FDA-Public Use
  Company Number: US-JNJCH-2009000574

PATIENT
  Sex: Female

DRUGS (1)
  1. LUDENS THROAT DROPS WILD CHERRY [Suspect]
     Indication: THROAT IRRITATION
     Dosage: TEXT:UNSPECIFIED
     Route: 048

REACTIONS (4)
  - GLOSSODYNIA [None]
  - PRODUCT CONTAMINATION [None]
  - TONGUE INJURY [None]
  - WRONG TECHNIQUE IN DRUG USAGE PROCESS [None]
